FAERS Safety Report 25390793 (Version 1)
Quarter: 2025Q2

REPORT INFORMATION
  Report Type: Spontaneous
  Country: RU (occurrence: RU)
  Receive Date: 20250603
  Receipt Date: 20250603
  Transmission Date: 20250717
  Serious: Yes (Hospitalization)
  Sender: EISAI
  Company Number: RU-Eisai-EC-2025-190228

PATIENT
  Age: 72 Year
  Sex: Female

DRUGS (2)
  1. LENVIMA [Suspect]
     Active Substance: LENVATINIB
     Indication: Renal cell carcinoma
     Dates: start: 20240815, end: 202408
  2. LENVIMA [Suspect]
     Active Substance: LENVATINIB
     Dates: start: 202408

REACTIONS (5)
  - Stomatitis [Recovering/Resolving]
  - Asthenia [Recovering/Resolving]
  - Urine output decreased [Recovering/Resolving]
  - Nausea [Recovering/Resolving]
  - Decreased appetite [Recovering/Resolving]

NARRATIVE: CASE EVENT DATE: 20240825
